FAERS Safety Report 6761831-6 (Version None)
Quarter: 2010Q2

REPORT INFORMATION
  Report Type: 
  Country: None (occurrence: None)
  Receive Date: 20100607
  Receipt Date: 20100521
  Transmission Date: 20101027
  Serious: Yes (Other)
  Sender: FDA-Public Use
  Company Number: AVE_01718_2010

PATIENT
  Sex: Female
  Weight: 90.7194 kg

DRUGS (4)
  1. CLONIDINE [Suspect]
     Indication: HYPERTENSION
     Dosage: (DF TRANSDERMAL), (0.2 MG QD, VIA 1/WEEKLY PATCH TRANSDERMAL)
     Route: 062
     Dates: start: 20100201, end: 20100101
  2. CLONIDINE [Suspect]
     Indication: HYPERTENSION
     Dosage: (DF TRANSDERMAL), (0.2 MG QD, VIA 1/WEEKLY PATCH TRANSDERMAL)
     Route: 062
     Dates: start: 20100325, end: 20100326
  3. TOPROL-XL [Concomitant]
  4. CATAPRES /00171101/ [Concomitant]

REACTIONS (6)
  - BLOOD PRESSURE INCREASED [None]
  - DRUG INEFFECTIVE [None]
  - FEELING COLD [None]
  - HEART RATE INCREASED [None]
  - PERIPHERAL COLDNESS [None]
  - PRODUCT ADHESION ISSUE [None]
